FAERS Safety Report 9752883 (Version 1)
Quarter: 2013Q4

REPORT INFORMATION
  Report Type: Spontaneous
  Country: US (occurrence: None)
  Receive Date: 20131211
  Receipt Date: 20131211
  Transmission Date: 20140711
  Serious: Yes (Other)
  Sender: FDA-Public Use
  Company Number: 7254644

PATIENT
  Sex: 0

DRUGS (1)
  1. LEVOTHYROXINE (LEVOTHYROXINE) [Suspect]
     Indication: HYPOTHYROIDISM

REACTIONS (4)
  - Thyroid cancer recurrent [None]
  - Fatigue [None]
  - Dry skin [None]
  - Blood thyroid stimulating hormone abnormal [None]
